FAERS Safety Report 7735696-X (Version None)
Quarter: 2011Q3

REPORT INFORMATION
  Report Type: 
  Country: None (occurrence: None)
  Receive Date: 20110908
  Receipt Date: 20110829
  Transmission Date: 20111222
  Serious: Yes (Other)
  Sender: FDA-Public Use
  Company Number: FR-BRISTOL-MYERS SQUIBB COMPANY-16020596

PATIENT
  Age: 66 Year
  Sex: Female

DRUGS (7)
  1. VASTAREL [Suspect]
     Indication: VERTIGO
     Dosage: VASTAREL 35MG TABS
     Route: 048
     Dates: start: 20090907
  2. GLUCOPHAGE [Suspect]
     Indication: TYPE 2 DIABETES MELLITUS
     Dosage: GLUCOPHAGE 1000MG
     Dates: start: 20040921
  3. HYPERIUM [Suspect]
     Indication: HYPERTENSION
     Dosage: HYPERIUM 1MG TABS
     Route: 048
     Dates: start: 20021218
  4. BICIRKAN [Suspect]
     Route: 048
  5. MEDIATOR [Suspect]
     Indication: TYPE 2 DIABETES MELLITUS
     Dosage: TABS
     Route: 048
     Dates: start: 20080603, end: 20100827
  6. FENOFIBRATE [Suspect]
     Indication: HYPERCHOLESTEROLAEMIA
     Route: 048
     Dates: start: 20080603
  7. BISOPROLOL FUMARATE [Suspect]
     Indication: HYPERTENSION
     Route: 048
     Dates: start: 20021218

REACTIONS (1)
  - AORTIC VALVE DISEASE [None]
